APPROVED DRUG PRODUCT: ROFLUMILAST
Active Ingredient: ROFLUMILAST
Strength: 250MCG
Dosage Form/Route: TABLET;ORAL
Application: A208272 | Product #002
Applicant: TORRENT PHARMACEUTICALS LTD
Approved: Oct 18, 2024 | RLD: No | RS: No | Type: DISCN